FAERS Safety Report 14965297 (Version 1)
Quarter: 2018Q2

REPORT INFORMATION
  Report Type: Report from Study
  Country: IT (occurrence: IT)
  Receive Date: 20180601
  Receipt Date: 20180601
  Transmission Date: 20180711
  Serious: Yes (Other)
  Sender: FDA-Public Use
  Company Number: IT-JNJFOC-20180533286

PATIENT

DRUGS (1)
  1. RILPIVIRINE HYDROCHLORIDE [Suspect]
     Active Substance: RILPIVIRINE HYDROCHLORIDE
     Indication: HIV INFECTION
     Route: 048

REACTIONS (20)
  - Insomnia [Unknown]
  - Dizziness [Unknown]
  - Depression [Unknown]
  - Hepatotoxicity [Unknown]
  - Treatment noncompliance [Unknown]
  - Rash [Unknown]
  - Tachypnoea [Unknown]
  - Virologic failure [Unknown]
  - Psychomotor hyperactivity [Unknown]
  - Arthralgia [Unknown]
  - Gastrointestinal toxicity [Unknown]
  - Renal impairment [Unknown]
  - Alanine aminotransferase increased [Unknown]
  - Acute kidney injury [Unknown]
  - Asthenia [Unknown]
  - Hepatitis [Unknown]
  - Headache [Unknown]
  - Neurotoxicity [Unknown]
  - Lipohypertrophy [Unknown]
  - Transaminases increased [Unknown]
